FAERS Safety Report 14198382 (Version 1)
Quarter: 2017Q4

REPORT INFORMATION
  Report Type: Spontaneous
  Country: FR (occurrence: FR)
  Receive Date: 20171117
  Receipt Date: 20171117
  Transmission Date: 20180321
  Serious: Yes (Disabling, Other)
  Sender: FDA-Public Use
  Company Number: FR-SHIRE-FR201728589

PATIENT

DRUGS (1)
  1. ELAPRASE [Suspect]
     Active Substance: IDURSULFASE
     Indication: MUCOPOLYSACCHARIDOSIS II
     Dosage: UNK UNK, 1X/WEEK
     Route: 065

REACTIONS (13)
  - Upper respiratory tract infection [Recovering/Resolving]
  - Gait disturbance [Recovering/Resolving]
  - Pain [Recovering/Resolving]
  - Fatigue [Recovering/Resolving]
  - Sleep disorder [Recovered/Resolved]
  - Lower respiratory tract congestion [Recovered/Resolved]
  - Hearing disability [Recovered/Resolved]
  - Sleep apnoea syndrome [Recovering/Resolving]
  - Cardiovascular disorder [Recovered/Resolved]
  - Joint stiffness [Recovering/Resolving]
  - Autonomic nervous system imbalance [Recovering/Resolving]
  - Epilepsy [Recovering/Resolving]
  - Speech disorder [Recovering/Resolving]
